FAERS Safety Report 21156998 (Version 2)
Quarter: 2022Q3

REPORT INFORMATION
  Report Type: Spontaneous
  Country: US (occurrence: US)
  Receive Date: 20220801
  Receipt Date: 20220926
  Transmission Date: 20221026
  Serious: Yes (Death, Other)
  Sender: FDA-Public Use
  Company Number: US-TEVA-2022-US-2060782

PATIENT
  Sex: Female

DRUGS (2)
  1. HYDROCHLOROTHIAZIDE\VALSARTAN [Suspect]
     Active Substance: HYDROCHLOROTHIAZIDE\VALSARTAN
     Indication: Hypertension
     Dosage: DOSE: VALSARTAN 160 MG/HYDROCHLOROTHIAZIDE25 MG
     Route: 065
     Dates: start: 20150728, end: 20180722
  2. HYDROCHLOROTHIAZIDE\VALSARTAN [Suspect]
     Active Substance: HYDROCHLOROTHIAZIDE\VALSARTAN
     Indication: Hypertension
     Dosage: DOSE: VALSARTAN 80 MG/HYDROCHLOROTHIAZIDE12.5 MG
     Route: 065
     Dates: start: 20121109, end: 20150415

REACTIONS (3)
  - Death [Fatal]
  - Hepatic cancer [Unknown]
  - Colorectal cancer [Unknown]
